FAERS Safety Report 20231787 (Version 1)
Quarter: 2021Q4

REPORT INFORMATION
  Report Type: Spontaneous
  Country: US (occurrence: None)
  Receive Date: 20211223
  Receipt Date: 20211223
  Transmission Date: 20220303
  Serious: Yes (Other)
  Sender: FDA-Public Use
  Company Number: None

PATIENT
  Age: 44 Year
  Sex: Female
  Weight: 83.7 kg

DRUGS (1)
  1. BAMLANIVIMAB\ETESEVIMAB [Suspect]
     Active Substance: BAMLANIVIMAB\ETESEVIMAB
     Indication: COVID-19
     Dosage: OTHER FREQUENCY : SINGLE DOSE;?
     Route: 041

REACTIONS (11)
  - Rash erythematous [None]
  - Rash [None]
  - Rash [None]
  - Burning sensation [None]
  - Burning sensation [None]
  - Dyspnoea [None]
  - Somnolence [None]
  - Discomfort [None]
  - Infusion related reaction [None]
  - Back disorder [None]
  - Burning sensation [None]

NARRATIVE: CASE EVENT DATE: 20211222
